FAERS Safety Report 15227310 (Version 1)
Quarter: 2018Q3

REPORT INFORMATION
  Report Type: Spontaneous
  Country: TR (occurrence: TR)
  Receive Date: 20180801
  Receipt Date: 20180801
  Transmission Date: 20181010
  Serious: Yes (Other)
  Sender: FDA-Public Use
  Company Number: TR-BAUSCH-BL-2018-020246

PATIENT
  Age: 34 Year
  Sex: Male

DRUGS (3)
  1. AMPICILLIN?SULBACTAM [Suspect]
     Active Substance: AMPICILLIN SODIUM\SULBACTAM SODIUM
     Indication: OTITIS MEDIA
     Route: 042
  2. OFLOXACIN. [Suspect]
     Active Substance: OFLOXACIN
     Route: 065
  3. OFLOXACIN. [Suspect]
     Active Substance: OFLOXACIN
     Indication: OTITIS MEDIA
     Route: 065

REACTIONS (1)
  - Therapy non-responder [Unknown]
